FAERS Safety Report 4859588-9 (Version None)
Quarter: 2005Q4

REPORT INFORMATION
  Report Type: 
  Country: None (occurrence: None)
  Receive Date: 20051219
  Receipt Date: 20050623
  Transmission Date: 20060501
  Serious: No
  Sender: FDA-Public Use
  Company Number: US-GLAXOSMITHKLINE-A0564079A

PATIENT
  Age: 73 Year
  Sex: Female

DRUGS (3)
  1. NICODERM CQ [Suspect]
     Dates: start: 20050521, end: 20050621
  2. NICORETTE [Suspect]
     Dates: start: 20050503, end: 20050510
  3. WELLBUTRIN [Concomitant]

REACTIONS (4)
  - DISCOMFORT [None]
  - NAUSEA [None]
  - PRURITUS [None]
  - STOMACH DISCOMFORT [None]
